FAERS Safety Report 10029418 (Version 2)
Quarter: 2014Q2

REPORT INFORMATION
  Report Type: Spontaneous
  Country: BR (occurrence: BR)
  Receive Date: 20140322
  Receipt Date: 20140604
  Transmission Date: 20141212
  Serious: Yes (Other)
  Sender: FDA-Public Use
  Company Number: PHHY2014BR034677

PATIENT
  Age: 70 Year
  Sex: Female
  Weight: 80 kg

DRUGS (4)
  1. DIOVAN AMLO FIX [Suspect]
     Indication: HYPERTENSION
     Dosage: 2 DF (VALS 160 MG, AMLO 5 MG), DAILY
     Route: 048
  2. AAS [Concomitant]
     Indication: ANTICOAGULANT THERAPY
     Dosage: 1 DF, DAILY
     Route: 048
  3. FLUOXETINE [Concomitant]
     Indication: ANXIETY
     Dosage: 1 DF, DAILY
     Route: 048
  4. SIMVASTATIN [Concomitant]
     Indication: BLOOD CHOLESTEROL INCREASED
     Dosage: 1 DF, DAILY
     Route: 048

REACTIONS (9)
  - Diabetes mellitus [Unknown]
  - Rheumatic disorder [Recovering/Resolving]
  - Arthralgia [Recovering/Resolving]
  - Fall [Recovered/Resolved]
  - Hand fracture [Recovered/Resolved]
  - Osteoporosis [Recovering/Resolving]
  - Pharyngitis [Recovered/Resolved]
  - Diarrhoea [Recovering/Resolving]
  - Hypertension [Unknown]
